FAERS Safety Report 5835150-6 (Version None)
Quarter: 2008Q3

REPORT INFORMATION
  Report Type: 
  Country: None (occurrence: None)
  Receive Date: 20080723
  Receipt Date: 20080523
  Transmission Date: 20090109
  Serious: Yes (Other)
  Sender: FDA-Public Use
  Company Number: DSU-2008-00749

PATIENT
  Sex: Male

DRUGS (2)
  1. WELCHOL [Suspect]
     Indication: HYPERLIPIDAEMIA
     Dosage: PER ORAL
     Route: 048
  2. ^A COUPLE OF [UNSPECIFIED] STATINS^ (HMG COA REDUCTASE INHIBITORS) [Concomitant]

REACTIONS (1)
  - PANCREATITIS [None]
